FAERS Safety Report 7466495-4 (Version None)
Quarter: 2011Q2

REPORT INFORMATION
  Report Type: 
  Country: None (occurrence: None)
  Receive Date: 20110509
  Receipt Date: 20100820
  Transmission Date: 20111010
  Serious: No
  Sender: FDA-Public Use
  Company Number: US-ALEXION-A201001041

PATIENT
  Sex: Male

DRUGS (10)
  1. ZANTAC                             /00550802/ [Concomitant]
     Dosage: UNK
     Route: 048
  2. MULTI-VITAMINS [Concomitant]
  3. SOLIRIS [Suspect]
     Indication: PAROXYSMAL NOCTURNAL HAEMOGLOBINURIA
     Dosage: UNK
     Route: 042
     Dates: start: 20090901
  4. ASPIRIN [Concomitant]
     Dosage: 81 MG, QD
     Route: 048
  5. FISH OIL [Concomitant]
  6. SOLIRIS [Suspect]
     Dosage: 900 MG, Q2W
     Route: 042
  7. FOLIC ACID [Concomitant]
     Dosage: UNK
     Route: 048
  8. VITAMIN C                          /00008001/ [Concomitant]
  9. IRON [Concomitant]
     Dosage: UNK
     Route: 048
  10. DANAZOL [Concomitant]
     Dosage: UNK
     Route: 048

REACTIONS (1)
  - LACERATION [None]
